FAERS Safety Report 16798784 (Version 1)
Quarter: 2019Q3

REPORT INFORMATION
  Report Type: Spontaneous
  Country: US (occurrence: US)
  Receive Date: 20190722
  Receipt Date: 20190722
  Transmission Date: 20191005
  Serious: No
  Sender: FDA-Public Use
  Company Number: None

PATIENT
  Age: 75 Year
  Sex: Female

DRUGS (1)
  1. FORTEO [Suspect]
     Active Substance: TERIPARATIDE
     Dates: start: 20190523, end: 201907

REACTIONS (9)
  - Diarrhoea [None]
  - Dysphonia [None]
  - Constipation [None]
  - Bone pain [None]
  - Depression [None]
  - Blood pressure increased [None]
  - Cough [None]
  - Nausea [None]
  - Abdominal pain upper [None]

NARRATIVE: CASE EVENT DATE: 20190701
